FAERS Safety Report 17105656 (Version 1)
Quarter: 2019Q4

REPORT INFORMATION
  Report Type: Spontaneous
  Country: CN (occurrence: CN)
  Receive Date: 20191203
  Receipt Date: 20191203
  Transmission Date: 20200122
  Serious: Yes (Hospitalization)
  Sender: FDA-Public Use
  Company Number: CN-PFIZER INC-2019514149

PATIENT
  Age: 43 Year
  Sex: Female
  Weight: 48 kg

DRUGS (4)
  1. SOLU-MEDROL [Suspect]
     Active Substance: METHYLPREDNISOLONE SODIUM SUCCINATE
     Indication: POLYNEUROPATHY
  2. SOLU-MEDROL [Suspect]
     Active Substance: METHYLPREDNISOLONE SODIUM SUCCINATE
     Indication: GUILLAIN-BARRE SYNDROME
     Dosage: 80 MG, 1X/DAY
     Route: 041
     Dates: start: 20191106, end: 20191119
  3. SOLU-MEDROL [Suspect]
     Active Substance: METHYLPREDNISOLONE SODIUM SUCCINATE
     Indication: ANKYLOSING SPONDYLITIS
  4. SODIUM CHLORIDE. [Concomitant]
     Active Substance: SODIUM CHLORIDE
     Indication: VEHICLE SOLUTION USE
     Dosage: 250 ML, 1X/DAY
     Route: 041
     Dates: start: 20191106, end: 20191119

REACTIONS (7)
  - Neutrophil count increased [Unknown]
  - Abdominal discomfort [Unknown]
  - Abdominal pain [Unknown]
  - White blood cell count increased [Unknown]
  - Platelet count increased [Unknown]
  - Gamma-glutamyltransferase increased [Unknown]
  - Alanine aminotransferase increased [Unknown]

NARRATIVE: CASE EVENT DATE: 20191114
